FAERS Safety Report 13261589 (Version 2)
Quarter: 2017Q1

REPORT INFORMATION
  Report Type: Spontaneous
  Country: AT (occurrence: AT)
  Receive Date: 20170222
  Receipt Date: 20170310
  Transmission Date: 20170428
  Serious: Yes (Other)
  Sender: FDA-Public Use
  Company Number: AT-LABORATOIRE HRA PHARMA-1063459

PATIENT
  Sex: Female
  Weight: 56 kg

DRUGS (1)
  1. ELLA [Suspect]
     Active Substance: ULIPRISTAL ACETATE
     Route: 048
     Dates: start: 20161121, end: 20161121

REACTIONS (2)
  - Unintended pregnancy [Recovered/Resolved]
  - Abortion spontaneous [Recovered/Resolved]
